FAERS Safety Report 6113810-X (Version None)
Quarter: 2009Q1

REPORT INFORMATION
  Report Type: 
  Country: None (occurrence: None)
  Receive Date: 20090312
  Receipt Date: 20090303
  Transmission Date: 20090719
  Serious: Yes (Life-Threatening, Hospitalization)
  Sender: FDA-Public Use
  Company Number: US-AMGEN-US336587

PATIENT
  Sex: Male

DRUGS (8)
  1. CINACALCET - BLINDED [Suspect]
     Indication: HYPERPARATHYROIDISM SECONDARY
     Route: 048
     Dates: start: 20071204
  2. NORVASC [Concomitant]
  3. AVAPRO [Concomitant]
  4. LIPITOR [Concomitant]
  5. VITAMIN D [Concomitant]
  6. NEPHRO-CAPS [Concomitant]
  7. HYDROCODONE BITARTRATE [Concomitant]
  8. CALCIUM ACETATE [Concomitant]

REACTIONS (3)
  - CONVULSION [None]
  - ENCEPHALOPATHY [None]
  - PULMONARY OEDEMA [None]
